FAERS Safety Report 15867039 (Version 3)
Quarter: 2019Q1

REPORT INFORMATION
  Report Type: Spontaneous
  Country: US (occurrence: US)
  Receive Date: 20190125
  Receipt Date: 20190222
  Transmission Date: 20190417
  Serious: Yes (Life-Threatening, Hospitalization, Other)
  Sender: FDA-Public Use
  Company Number: US-LUPIN HEALTHCARE (UK) LIMITED-2019-00258

PATIENT
  Age: 50 Year
  Sex: Female
  Weight: 48.07 kg

DRUGS (9)
  1. LEVETIRACETAM TABLETS USP, 750 MG [Suspect]
     Active Substance: LEVETIRACETAM
     Indication: EPILEPSY
     Dosage: 750 MG, BID
     Route: 048
     Dates: end: 201808
  2. LEVETIRACETAM. [Suspect]
     Active Substance: LEVETIRACETAM
     Indication: EPILEPSY
     Dosage: 500 MILLIGRAM
     Route: 042
  3. LEVETIRACETAM. [Suspect]
     Active Substance: LEVETIRACETAM
     Indication: EPILEPSY
     Dosage: 500 MILLIGRAM, BID (ONCE IN MORNING AND IN NIGHT), STARTED AROUND 01-OCT-2018
     Route: 048
  4. DEPAKOTE [Concomitant]
     Active Substance: DIVALPROEX SODIUM
     Indication: PRODUCT USED FOR UNKNOWN INDICATION
     Dosage: UNK, BID, IN THE MORNING AND AT NIGHT
     Route: 065
  5. VIMPAT [Concomitant]
     Active Substance: LACOSAMIDE
     Indication: PRODUCT USED FOR UNKNOWN INDICATION
     Dosage: 0.5 MILLIGRAM, QD, AT NIGHT
     Route: 065
  6. CLONAZEPAM. [Concomitant]
     Active Substance: CLONAZEPAM
     Indication: PRODUCT USED FOR UNKNOWN INDICATION
     Dosage: 0.5 MILLIGRAM, QD, AT NIGHT
     Route: 065
  7. VITAMIN D                          /00107901/ [Concomitant]
     Active Substance: ERGOCALCIFEROL
     Indication: PRODUCT USED FOR UNKNOWN INDICATION
     Dosage: UNK
     Route: 065
  8. DILANTIN [Concomitant]
     Active Substance: PHENYTOIN
     Indication: PRODUCT USED FOR UNKNOWN INDICATION
     Dosage: UNK, BID, IN THE MORNING AND AT NIGHT
     Route: 065
  9. VITAMIN C [Concomitant]
     Active Substance: ASCORBIC ACID
     Indication: PRODUCT USED FOR UNKNOWN INDICATION
     Dosage: UNK
     Route: 065

REACTIONS (20)
  - Asthenia [Recovered/Resolved]
  - Nausea [Recovered/Resolved]
  - Anticonvulsant drug level increased [Recovered/Resolved]
  - Blood sodium decreased [Recovered/Resolved]
  - Spinal fracture [Unknown]
  - Urinary retention [Unknown]
  - Rib fracture [Recovered/Resolved]
  - Pneumonia aspiration [Recovered/Resolved]
  - Urinary tract infection [Unknown]
  - Weight decreased [Recovered/Resolved]
  - Fall [Recovered/Resolved]
  - Malaise [Unknown]
  - Extra dose administered [Unknown]
  - Incontinence [Not Recovered/Not Resolved]
  - Ataxia [Unknown]
  - Renal failure [Recovered/Resolved]
  - Reaction to excipient [Unknown]
  - Hypophagia [Recovered/Resolved]
  - Vomiting [Recovered/Resolved]
  - Bone marrow failure [Unknown]

NARRATIVE: CASE EVENT DATE: 20180613
